FAERS Safety Report 5921372-2 (Version None)
Quarter: 2008Q4

REPORT INFORMATION
  Report Type: 
  Country: None (occurrence: None)
  Receive Date: 20081014
  Receipt Date: 20080929
  Transmission Date: 20090506
  Serious: Yes (Other)
  Sender: FDA-Public Use
  Company Number: 100#08#2008-04970

PATIENT
  Age: 10 Year
  Sex: Female

DRUGS (3)
  1. CARBAMAZEPINE [Suspect]
     Indication: EPILEPSY
  2. IMMUNE GLOBULIN (HUMAN) [Suspect]
     Indication: DRUG USE FOR UNKNOWN INDICATION
     Dosage: 2 G/KG INTRAVENOUS
     Route: 042
  3. PREDNISONE [Suspect]
     Indication: DRUG USE FOR UNKNOWN INDICATION
     Dosage: 2 MG/KG

REACTIONS (19)
  - ABSCESS [None]
  - BLOOD ALBUMIN DECREASED [None]
  - CONJUNCTIVITIS [None]
  - COUGH [None]
  - CULTURE POSITIVE [None]
  - CULTURE URINE POSITIVE [None]
  - DRUG HYPERSENSITIVITY [None]
  - DYSPNOEA [None]
  - HEPATOMEGALY [None]
  - HYPERSENSITIVITY [None]
  - LYMPHADENITIS [None]
  - MOUTH ULCERATION [None]
  - OEDEMA PERIPHERAL [None]
  - PULSE PRESSURE INCREASED [None]
  - PYREXIA [None]
  - STAPHYLOCOCCAL INFECTION [None]
  - STOMATITIS [None]
  - TACHYCARDIA [None]
  - TENDONITIS [None]
